FAERS Safety Report 24623726 (Version 2)
Quarter: 2024Q4

REPORT INFORMATION
  Report Type: Report from Study
  Country: EC (occurrence: EC)
  Receive Date: 20241115
  Receipt Date: 20241121
  Transmission Date: 20250114
  Serious: Yes (Other)
  Sender: EMD SERONO INC
  Company Number: EC-Merck Healthcare KGaA-2024059784

PATIENT
  Age: 11 Year
  Sex: Female
  Weight: 41 kg

DRUGS (1)
  1. SAIZEN [Suspect]
     Active Substance: SOMATROPIN
     Indication: Growth hormone deficiency
     Route: 058
     Dates: start: 20170801

REACTIONS (1)
  - Polycystic ovarian syndrome [Unknown]

NARRATIVE: CASE EVENT DATE: 20231201
